FAERS Safety Report 8830142 (Version 2)
Quarter: 2012Q4

REPORT INFORMATION
  Report Type: 
  Country: US (occurrence: US)
  Receive Date: 20121008
  Receipt Date: 20121218
  Transmission Date: 20130627
  Serious: Yes (Hospitalization, Disabling, Other)
  Sender: FDA-Public Use
  Company Number: US-009507513-1108USA01245

PATIENT

DRUGS (5)
  1. FOSAMAX D [Suspect]
     Indication: OSTEOPOROSIS
     Dosage: 70mg/2800
     Route: 048
     Dates: start: 20061122, end: 20091125
  2. FOSAMAX [Suspect]
     Indication: OSTEOPOROSIS PROPHYLAXIS
     Route: 048
  3. FOSAMAX [Suspect]
     Indication: OSTEOPENIA
  4. FOSAMAX [Suspect]
     Indication: OSTEOPOROSIS
     Dosage: 70 mg, UNK
     Route: 048
     Dates: start: 20100107, end: 20101027
  5. ZOMETA [Suspect]
     Route: 042
     Dates: end: 201101

REACTIONS (49)
  - Renal failure chronic [Not Recovered/Not Resolved]
  - Osteoradionecrosis [Unknown]
  - Chondrocalcinosis pyrophosphate [Unknown]
  - Polyarthritis [Unknown]
  - Oedema [Unknown]
  - Hypertensive heart disease [Unknown]
  - Plasma cell myeloma [Unknown]
  - Osteonecrosis of jaw [Unknown]
  - Oral infection [Unknown]
  - Gingival infection [Unknown]
  - Oral disorder [Unknown]
  - Tooth disorder [Unknown]
  - Oral disorder [Unknown]
  - Oral infection [Unknown]
  - Oral infection [Unknown]
  - Actinomycosis [Not Recovered/Not Resolved]
  - Tooth disorder [Unknown]
  - Cataract [Unknown]
  - Soft tissue disorder [Unknown]
  - Chronic obstructive pulmonary disease [Not Recovered/Not Resolved]
  - Chondrocalcinosis pyrophosphate [Unknown]
  - Confusional state [Recovering/Resolving]
  - Nocturia [Unknown]
  - Atrophic vulvovaginitis [Unknown]
  - Strabismus [Unknown]
  - Arcus lipoides [Unknown]
  - Pupils unequal [Unknown]
  - Pupillary deformity [Unknown]
  - Tympanic membrane atrophic [Unknown]
  - Goitre [Unknown]
  - Carotid bruit [Unknown]
  - Cardiac murmur [Unknown]
  - Nipple disorder [Unknown]
  - Abdominal bruit [Unknown]
  - Femoral bruit [Unknown]
  - Skin depigmentation [Unknown]
  - Areflexia [Unknown]
  - Tremor [Unknown]
  - Left ventricular hypertrophy [Unknown]
  - Supraventricular extrasystoles [Unknown]
  - Cardiomegaly [Unknown]
  - Vulvitis [Unknown]
  - Spondylolisthesis [Unknown]
  - Arteriosclerosis [Unknown]
  - Nephrogenic anaemia [Unknown]
  - Memory impairment [Unknown]
  - Soft tissue infection [Unknown]
  - Abscess bacterial [Unknown]
  - Abscess oral [Unknown]
